FAERS Safety Report 20557439 (Version 1)
Quarter: 2022Q1

REPORT INFORMATION
  Report Type: Spontaneous
  Country: US (occurrence: US)
  Receive Date: 20220307
  Receipt Date: 20220307
  Transmission Date: 20220423
  Serious: No
  Sender: FDA-Public Use
  Company Number: US-drreddys-SPO/USA/22/0147262

PATIENT
  Age: 15 Year

DRUGS (2)
  1. ZENATANE [Suspect]
     Active Substance: ISOTRETINOIN
     Indication: Product used for unknown indication
     Dosage: RMA ISSUE DATE: 13/OCTOBER/2021 11:25:05 AM
  2. ZENATANE [Suspect]
     Active Substance: ISOTRETINOIN
     Dosage: RMA ISSUE DATE: 15/NOVEMBER/2021 05:11:21 PM, 06/DECEMBER/2021 03:46:28 PM, 22/DECEMBER/2021 02:50:2

REACTIONS (1)
  - Abdominal discomfort [Unknown]
